FAERS Safety Report 9349452 (Version 1)
Quarter: 2013Q2

REPORT INFORMATION
  Report Type: Spontaneous
  Country: FR (occurrence: FR)
  Receive Date: 20130614
  Receipt Date: 20130614
  Transmission Date: 20140414
  Serious: Yes (Hospitalization)
  Sender: FDA-Public Use
  Company Number: FR-ABBOTT-13X-056-1104722-00

PATIENT
  Age: 91 Year
  Sex: Female

DRUGS (4)
  1. TARKA [Suspect]
     Indication: HYPERTENSION
     Route: 048
     Dates: start: 20130314, end: 20130318
  2. CORVASAL [Suspect]
     Indication: HYPERTENSION
     Route: 048
     Dates: start: 1998, end: 20130321
  3. ALDACTONE [Suspect]
     Indication: PSORIASIS
     Route: 048
     Dates: start: 1998, end: 20130318
  4. VERAPAMIL [Concomitant]
     Indication: HYPERTENSION
     Dates: end: 20130314

REACTIONS (4)
  - Fibrin D dimer [Unknown]
  - Renal failure acute [Recovered/Resolved]
  - Hyperkalaemia [Recovered/Resolved]
  - Hyponatraemia [Recovered/Resolved]
